FAERS Safety Report 6210299-7 (Version None)
Quarter: 2009Q2

REPORT INFORMATION
  Report Type: 
  Country: None (occurrence: None)
  Receive Date: 20090601
  Receipt Date: 20090528
  Transmission Date: 20091009
  Serious: Yes (Other)
  Sender: FDA-Public Use
  Company Number: JP-ALLERGAN-0907544US

PATIENT
  Age: 4 Year
  Sex: Male

DRUGS (1)
  1. ALESION SYRUP [Suspect]
     Indication: DRUG USE FOR UNKNOWN INDICATION
     Dosage: UNK, UNKNOWN
     Route: 048
     Dates: start: 20090515, end: 20090521

REACTIONS (1)
  - PLATELET COUNT DECREASED [None]
